FAERS Safety Report 9827514 (Version 1)
Quarter: 2014Q1

REPORT INFORMATION
  Report Type: Spontaneous
  Country: US (occurrence: US)
  Receive Date: 20140117
  Receipt Date: 20140117
  Transmission Date: 20141002
  Serious: Yes (Other)
  Sender: FDA-Public Use
  Company Number: US-ASTRAZENECA-2014SE02279

PATIENT
  Age: 85 Year
  Sex: Male

DRUGS (2)
  1. BRILINTA [Suspect]
     Indication: ACUTE CORONARY SYNDROME
     Route: 048
  2. BRILINTA [Suspect]
     Indication: STENT PLACEMENT
     Route: 048

REACTIONS (3)
  - Thrombosis in device [Unknown]
  - Adverse event [Unknown]
  - Dyspnoea [Unknown]
